FAERS Safety Report 7150601-5 (Version None)
Quarter: 2010Q4

REPORT INFORMATION
  Report Type: 
  Country: None (occurrence: None)
  Receive Date: 20101210
  Receipt Date: 20101203
  Transmission Date: 20110411
  Serious: Yes (Other)
  Sender: FDA-Public Use
  Company Number: GB-PFIZER INC-2010141158

PATIENT
  Age: 64 Year
  Sex: Female

DRUGS (8)
  1. GABAPENTIN [Suspect]
     Indication: BACK PAIN
     Dosage: UNK
     Dates: start: 20090305, end: 20101029
  2. ADCAL-D3 [Concomitant]
  3. ACETYLSALICYLIC ACID [Concomitant]
     Dosage: UNK
     Dates: start: 20070101
  4. ATORVASTATIN [Concomitant]
     Dosage: UNK
     Dates: start: 20010101
  5. CO-CODAMOL [Concomitant]
     Dosage: UNK
     Dates: start: 20040101
  6. OMEPRAZOLE [Concomitant]
     Dosage: UNK
     Dates: start: 19990101
  7. PROPRANOLOL [Concomitant]
     Dosage: 80 MG, UNK
     Dates: start: 19950101
  8. PROPRANOLOL [Concomitant]
     Dosage: 40 MG, 3X/DAY
     Dates: start: 19980101

REACTIONS (2)
  - BREAST ENLARGEMENT [None]
  - BREAST PAIN [None]
